FAERS Safety Report 22036871 (Version 2)
Quarter: 2023Q1

REPORT INFORMATION
  Report Type: Spontaneous
  Country: GB (occurrence: GB)
  Receive Date: 20230225
  Receipt Date: 20230318
  Transmission Date: 20230417
  Serious: Yes (Other)
  Sender: FDA-Public Use
  Company Number: GB-AMGEN-GBRSP2023030414

PATIENT
  Sex: Male

DRUGS (2)
  1. ADALIMUMAB [Suspect]
     Active Substance: ADALIMUMAB
     Indication: Colitis ulcerative
     Dosage: 40 MILLIGRAM, Q2WK
     Route: 058
     Dates: end: 202205
  2. ADALIMUMAB [Suspect]
     Active Substance: ADALIMUMAB
     Dosage: UNK
     Route: 058
     Dates: start: 202302

REACTIONS (2)
  - Pleural effusion [Unknown]
  - Colitis ulcerative [Unknown]
